FAERS Safety Report 6620747-6 (Version None)
Quarter: 2010Q1

REPORT INFORMATION
  Report Type: 
  Country: None (occurrence: None)
  Receive Date: 20100309
  Receipt Date: 20100224
  Transmission Date: 20100710
  Serious: Yes (Other)
  Sender: FDA-Public Use
  Company Number: JP-GENENTECH-243895

PATIENT
  Sex: Female
  Weight: 50 kg

DRUGS (13)
  1. RANIBIZUMAB [Suspect]
     Indication: MACULAR DEGENERATION
     Dosage: 500 A?G, 1/MONTH
     Route: 031
     Dates: start: 20060725
  2. RANIBIZUMAB [Suspect]
     Dosage: 0.2 ML - 0.3 ML, SINGLE
     Route: 031
     Dates: start: 20070621
  3. LISINOPRIL [Concomitant]
     Indication: DRUG USE FOR UNKNOWN INDICATION
  4. GASTER [Concomitant]
     Indication: DRUG USE FOR UNKNOWN INDICATION
  5. SENNOSIDE [Concomitant]
     Indication: DRUG USE FOR UNKNOWN INDICATION
  6. HALCION [Concomitant]
     Indication: DRUG USE FOR UNKNOWN INDICATION
  7. MEVALOTIN [Concomitant]
     Indication: DRUG USE FOR UNKNOWN INDICATION
  8. DEPAS [Concomitant]
     Indication: DRUG USE FOR UNKNOWN INDICATION
  9. APROMAL TAB [Concomitant]
     Indication: DRUG USE FOR UNKNOWN INDICATION
  10. COFFEINE [Concomitant]
     Indication: DRUG USE FOR UNKNOWN INDICATION
  11. IBUPROFEN [Concomitant]
     Indication: DRUG USE FOR UNKNOWN INDICATION
  12. LEVOFLOXACIN [Concomitant]
     Indication: DRUG USE FOR UNKNOWN INDICATION
  13. NORVASC [Concomitant]
     Indication: DRUG USE FOR UNKNOWN INDICATION

REACTIONS (5)
  - CORNEAL OEDEMA [None]
  - EYE PAIN [None]
  - OCULAR HYPERTENSION [None]
  - OVERDOSE [None]
  - VISUAL ACUITY REDUCED [None]
